FAERS Safety Report 7525144-7 (Version None)
Quarter: 2011Q2

REPORT INFORMATION
  Report Type: 
  Country: None (occurrence: None)
  Receive Date: 20110606
  Receipt Date: 20110527
  Transmission Date: 20111010
  Serious: Yes (Other)
  Sender: FDA-Public Use
  Company Number: CO-TYCO HEALTHCARE/MALLINCKRODT-T201101151

PATIENT
  Sex: Female
  Weight: 62 kg

DRUGS (1)
  1. OPTIMARK [Suspect]
     Indication: ANGIOGRAM CEREBRAL
     Dosage: 15 ML, SINGLE
     Route: 042
     Dates: start: 20110502, end: 20110502

REACTIONS (3)
  - DYSPNOEA [None]
  - ARTERIOSPASM CORONARY [None]
  - COUGH [None]
